FAERS Safety Report 9978179 (Version 1)
Quarter: 2014Q1

REPORT INFORMATION
  Report Type: Spontaneous
  Country: US (occurrence: US)
  Receive Date: 20140306
  Receipt Date: 20140306
  Transmission Date: 20141002
  Serious: No
  Sender: FDA-Public Use
  Company Number: US-PFIZER INC-2014062827

PATIENT
  Age: 17 Year
  Sex: Female

DRUGS (1)
  1. ADVIL [Suspect]
     Indication: PAIN IN JAW
     Dosage: 200 MG, AS NEEDED
     Route: 048
     Dates: start: 2013

REACTIONS (2)
  - Urticaria [Unknown]
  - Lip swelling [Unknown]
